FAERS Safety Report 11711859 (Version 1)
Quarter: 2015Q4

REPORT INFORMATION
  Report Type: Spontaneous
  Country: US (occurrence: US)
  Receive Date: 20151104
  Receipt Date: 20151104
  Transmission Date: 20160304
  Serious: No
  Sender: FDA-Public Use
  Company Number: US-ELI_LILLY_AND_COMPANY-US201103002547

PATIENT
  Age: 46 Year
  Sex: Female

DRUGS (2)
  1. FORTEO [Suspect]
     Active Substance: TERIPARATIDE
     Indication: OSTEOPOROSIS
     Dosage: 20 UG, DAILY (1/D)
     Route: 065
     Dates: start: 200908
  2. FORTEO [Suspect]
     Active Substance: TERIPARATIDE
     Dosage: 20 UG, QD

REACTIONS (15)
  - Lactose intolerance [Unknown]
  - Nausea [Unknown]
  - Abdominal discomfort [Unknown]
  - Weight decreased [Unknown]
  - Frustration [Unknown]
  - Dizziness [Unknown]
  - Sleep disorder due to a general medical condition [Unknown]
  - Drug dose omission [Unknown]
  - Abdominal pain upper [Unknown]
  - General physical condition abnormal [Unknown]
  - Fear [Unknown]
  - Gastric disorder [Unknown]
  - Abdominal distension [Unknown]
  - Drug dose omission [Unknown]
  - Diarrhoea [Unknown]

NARRATIVE: CASE EVENT DATE: 20110609
